FAERS Safety Report 6726393-8 (Version None)
Quarter: 2010Q2

REPORT INFORMATION
  Report Type: 
  Country: None (occurrence: None)
  Receive Date: 20100514
  Receipt Date: 20100507
  Transmission Date: 20101027
  Serious: Yes (Other)
  Sender: FDA-Public Use
  Company Number: B0652177A

PATIENT
  Age: 62 Year
  Sex: Male

DRUGS (2)
  1. ZELITREX [Suspect]
     Indication: ANTIVIRAL PROPHYLAXIS
     Dosage: .5TAB TWICE PER DAY
     Route: 048
     Dates: start: 20100201
  2. FOSAMAX [Concomitant]
     Indication: OSTEOPOROSIS
     Route: 048
     Dates: end: 20100201

REACTIONS (2)
  - HALLUCINATION, OLFACTORY [None]
  - SINUS POLYP [None]
